FAERS Safety Report 11738540 (Version 1)
Quarter: 2015Q4

REPORT INFORMATION
  Report Type: Spontaneous
  Country: US (occurrence: US)
  Receive Date: 20151110
  Receipt Date: 20151110
  Transmission Date: 20160304
  Serious: No
  Sender: FDA-Public Use
  Company Number: US-ELI_LILLY_AND_COMPANY-US201208002439

PATIENT
  Sex: Female

DRUGS (1)
  1. FORTEO [Suspect]
     Active Substance: TERIPARATIDE
     Dosage: 20 UG, QD
     Dates: start: 201207

REACTIONS (6)
  - Gait disturbance [Recovered/Resolved]
  - Infrequent bowel movements [Recovered/Resolved]
  - Pain [Unknown]
  - Speech disorder [Unknown]
  - Dysphagia [Unknown]
  - Constipation [Unknown]
